FAERS Safety Report 21930489 (Version 2)
Quarter: 2023Q1

REPORT INFORMATION
  Report Type: Report from Study
  Country: US (occurrence: US)
  Receive Date: 20230131
  Receipt Date: 20230224
  Transmission Date: 20230418
  Serious: Yes (Other)
  Sender: FDA-Public Use
  Company Number: US-TAKEDA-2023TUS009300

PATIENT
  Sex: Female
  Weight: 50.79 kg

DRUGS (24)
  1. HUMAN IMMUNOGLOBULIN G [Suspect]
     Active Substance: HUMAN IMMUNOGLOBULIN G
     Indication: Immunodeficiency common variable
     Dosage: 18 GRAM, Q2WEEKS
     Route: 058
     Dates: start: 20221003
  2. EPINEPHRINE [Concomitant]
     Active Substance: EPINEPHRINE
  3. DIPHENHYDRAMINE [Concomitant]
     Active Substance: DIPHENHYDRAMINE
  4. SILDENAFIL CITRATE [Concomitant]
     Active Substance: SILDENAFIL CITRATE
  5. LEVOTHYROXINE SODIUM [Concomitant]
     Active Substance: LEVOTHYROXINE SODIUM
  6. FORTEO [Concomitant]
     Active Substance: TERIPARATIDE
  7. DULOXETINE HYDROCHLORIDE [Concomitant]
     Active Substance: DULOXETINE HYDROCHLORIDE
  8. TYLENOL [Concomitant]
     Active Substance: ACETAMINOPHEN
  9. CALTRATE PLUS-D [Concomitant]
  10. NIACIN [Concomitant]
     Active Substance: NIACIN
  11. PREDNISONE [Concomitant]
     Active Substance: PREDNISONE
  12. GABAPENTIN [Concomitant]
     Active Substance: GABAPENTIN
  13. ACETAMINOPHEN [Concomitant]
     Active Substance: ACETAMINOPHEN
  14. CIPROFLOXACIN HYDROCHLORIDE [Concomitant]
     Active Substance: CIPROFLOXACIN HYDROCHLORIDE
  15. MYFORTIC [Concomitant]
     Active Substance: MYCOPHENOLATE SODIUM
  16. FLOVENT HFA [Concomitant]
     Active Substance: FLUTICASONE PROPIONATE
  17. NEXIUM [Concomitant]
     Active Substance: ESOMEPRAZOLE MAGNESIUM
  18. Metamucil G [Concomitant]
  19. MUPIROCIN [Concomitant]
     Active Substance: MUPIROCIN
  20. Lmx [Concomitant]
  21. LEVALBUTEROL TARTRATE [Concomitant]
     Active Substance: LEVALBUTEROL TARTRATE
  22. PEPCID [Concomitant]
     Active Substance: FAMOTIDINE
     Route: 065
  23. IMODIUM [Concomitant]
     Active Substance: LOPERAMIDE HYDROCHLORIDE
     Route: 065
  24. AZITHROMYCIN [Concomitant]
     Active Substance: AZITHROMYCIN
     Route: 065

REACTIONS (3)
  - Fungal oesophagitis [Unknown]
  - Pneumonia bacterial [Unknown]
  - Device infusion issue [Unknown]
